FAERS Safety Report 4545863-4 (Version None)
Quarter: 2005Q1

REPORT INFORMATION
  Report Type: 
  Country: None (occurrence: None)
  Receive Date: 20050104
  Receipt Date: 20050104
  Transmission Date: 20050727
  Serious: Yes (Hospitalization)
  Sender: FDA-Public Use
  Company Number: None

PATIENT
  Age: 58 Year
  Sex: Male
  Weight: 79.3795 kg

DRUGS (3)
  1. CISPLATIN [Suspect]
     Indication: NEOPLASM MALIGNANT
     Dosage: C1 - IV
     Route: 042
     Dates: start: 20041115
  2. CISPLATIN [Suspect]
     Indication: NEOPLASM MALIGNANT
     Dosage: C2 - IV
     Route: 042
     Dates: start: 20041213
  3. RADIATION THERAPY [Concomitant]

REACTIONS (4)
  - BLOOD CREATININE ABNORMAL [None]
  - DEHYDRATION [None]
  - DRUG TOXICITY [None]
  - TREATMENT NONCOMPLIANCE [None]
